FAERS Safety Report 7321502-4 (Version None)
Quarter: 2011Q1

REPORT INFORMATION
  Report Type: 
  Country: None (occurrence: None)
  Receive Date: 20110228
  Receipt Date: 20110221
  Transmission Date: 20110831
  Serious: Yes (Other)
  Sender: FDA-Public Use
  Company Number: US-US-EMD SERONO, INC.-233120J10USA

PATIENT
  Sex: Female
  Weight: 91 kg

DRUGS (1)
  1. REBIF [Suspect]
     Indication: MULTIPLE SCLEROSIS
     Route: 058
     Dates: start: 20090701, end: 20091213

REACTIONS (2)
  - DEEP VEIN THROMBOSIS [None]
  - ANTIPHOSPHOLIPID ANTIBODIES POSITIVE [None]
